FAERS Safety Report 23688745 (Version 3)
Quarter: 2024Q2

REPORT INFORMATION
  Report Type: Report from Study
  Country: CA (occurrence: CA)
  Receive Date: 20240329
  Receipt Date: 20240405
  Transmission Date: 20240715
  Serious: Yes (Hospitalization)
  Sender: FDA-Public Use
  Company Number: CA-ABBVIE-5695345

PATIENT
  Age: 47 Year
  Sex: Female

DRUGS (4)
  1. RINVOQ [Suspect]
     Active Substance: UPADACITINIB
     Indication: Colitis ulcerative
     Dosage: FORM STRENGTH: 15 MILLIGRAM?LAST ADMIN DATE : 2024
     Route: 048
     Dates: end: 20240307
  2. RINVOQ [Suspect]
     Active Substance: UPADACITINIB
     Indication: Colitis ulcerative
     Dosage: LAST ADMIN DATE : 2024
     Route: 048
     Dates: start: 20231206
  3. RINVOQ [Suspect]
     Active Substance: UPADACITINIB
     Indication: Colitis ulcerative
     Dosage: LAST ADMIN DATE- 2024
     Route: 048
     Dates: start: 20240202
  4. RINVOQ [Suspect]
     Active Substance: UPADACITINIB
     Indication: Colitis ulcerative
     Dosage: FORM STRENGTH: 15 MILLIGRAM
     Route: 048
     Dates: start: 202403

REACTIONS (4)
  - Hysterectomy [Unknown]
  - Post procedural diarrhoea [Unknown]
  - Frequent bowel movements [Unknown]
  - Post procedural fever [Unknown]

NARRATIVE: CASE EVENT DATE: 20240301
